FAERS Safety Report 7678608-X (Version None)
Quarter: 2011Q3

REPORT INFORMATION
  Report Type: 
  Country: None (occurrence: None)
  Receive Date: 20110811
  Receipt Date: 20110809
  Transmission Date: 20111222
  Serious: Yes (Hospitalization, Other)
  Sender: FDA-Public Use
  Company Number: US-ABBOTT-11P-163-0838764-00

PATIENT
  Sex: Male
  Weight: 113.5 kg

DRUGS (6)
  1. HUMIRA [Suspect]
     Dates: start: 20110501
  2. LEVOXYL [Concomitant]
     Indication: THYROID NEOPLASM
  3. DIOVAN HCT [Concomitant]
     Indication: HYPERTENSION
  4. WARFARIN [Concomitant]
     Indication: FACTOR V LEIDEN MUTATION
  5. HUMIRA [Suspect]
     Indication: ANKYLOSING SPONDYLITIS
     Dates: start: 20090701
  6. CALCIUM CARBONATE [Concomitant]
     Indication: PRODUCT USED FOR UNKNOWN INDICATION

REACTIONS (2)
  - OSTEOARTHRITIS [None]
  - CARTILAGE ATROPHY [None]
